FAERS Safety Report 24965158 (Version 2)
Quarter: 2025Q1

REPORT INFORMATION
  Report Type: Spontaneous
  Country: US (occurrence: US)
  Receive Date: 20250213
  Receipt Date: 20250224
  Transmission Date: 20250408
  Serious: Yes (Other)
  Sender: HIKMA
  Company Number: US-HIKMA PHARMACEUTICALS USA INC.-US-H14001-25-01249

PATIENT
  Sex: Female

DRUGS (1)
  1. MEPERIDINE [Suspect]
     Active Substance: MEPERIDINE
     Indication: Pain
     Route: 065

REACTIONS (4)
  - Impaired gastric emptying [Unknown]
  - Condition aggravated [Unknown]
  - Functional gastrointestinal disorder [Unknown]
  - Product dose omission issue [Unknown]
